FAERS Safety Report 16775131 (Version 2)
Quarter: 2019Q4

REPORT INFORMATION
  Report Type: Report from Study
  Country: AR (occurrence: AR)
  Receive Date: 20190905
  Receipt Date: 20191011
  Transmission Date: 20200122
  Serious: Yes (Death, Hospitalization)
  Sender: FDA-Public Use
  Company Number: AR-EMD SERONO-9114878

PATIENT
  Sex: Female

DRUGS (2)
  1. REBIF [Suspect]
     Active Substance: INTERFERON BETA-1A
     Dates: start: 20190320
  2. REBIF [Suspect]
     Active Substance: INTERFERON BETA-1A
     Indication: MULTIPLE SCLEROSIS
     Route: 058
     Dates: start: 20030203

REACTIONS (4)
  - Cardiac arrest [Fatal]
  - Tachycardia [Fatal]
  - Arrhythmia [Fatal]
  - Coma [Fatal]

NARRATIVE: CASE EVENT DATE: 2019
